FAERS Safety Report 14824726 (Version 1)
Quarter: 2018Q2

REPORT INFORMATION
  Report Type: Spontaneous
  Country: US (occurrence: US)
  Receive Date: 20180429
  Receipt Date: 20180429
  Transmission Date: 20180711
  Serious: No
  Sender: FDA-Public Use
  Company Number: US-CELGENEUS-USA-20180408136

PATIENT
  Age: 69 Year
  Sex: Female

DRUGS (2)
  1. APREMILAST [Suspect]
     Active Substance: APREMILAST
     Dosage: 30 MILLIGRAM
     Route: 048
  2. APREMILAST [Suspect]
     Active Substance: APREMILAST
     Indication: PSORIASIS
     Route: 048
     Dates: start: 20170601

REACTIONS (6)
  - Hypercholesterolaemia [Unknown]
  - Blood triglycerides increased [Unknown]
  - Incorrect dose administered [Unknown]
  - Low density lipoprotein increased [Unknown]
  - Weight decreased [Unknown]
  - Myalgia [Unknown]

NARRATIVE: CASE EVENT DATE: 201706
